FAERS Safety Report 6337173-X (Version None)
Quarter: 2009Q3

REPORT INFORMATION
  Report Type: 
  Country: None (occurrence: None)
  Receive Date: 20090831
  Receipt Date: 20090819
  Transmission Date: 20100115
  Serious: Yes (Hospitalization, Disabling)
  Sender: FDA-Public Use
  Company Number: 2009AP003380

PATIENT
  Age: 83 Year
  Sex: Female

DRUGS (8)
  1. ALENDRONATE SODIUM [Suspect]
     Indication: RHEUMATOID ARTHRITIS
     Dosage: 70 MG;QW; PO
     Route: 048
     Dates: start: 20041116, end: 20090624
  2. ATENOLOL [Concomitant]
  3. CALCIUM CARBONATE [Concomitant]
  4. COLECALCIFEROL (COLECALCIFEROL) [Concomitant]
  5. AMILORIDE HYDROCHLORIDE [Concomitant]
  6. FUROSEMIDE [Concomitant]
  7. PREDNISOLONE [Concomitant]
  8. WARFARIN SODIUM [Concomitant]

REACTIONS (4)
  - OSTEONECROSIS [None]
  - PAROTITIS [None]
  - SWELLING FACE [None]
  - TOOTH ABSCESS [None]
